FAERS Safety Report 24294243 (Version 1)
Quarter: 2024Q3

REPORT INFORMATION
  Report Type: Spontaneous
  Country: US (occurrence: US)
  Receive Date: 20240906
  Receipt Date: 20240906
  Transmission Date: 20241016
  Serious: No
  Sender: DOMPE FARMACEUTICI
  Company Number: US-FARMAPROD-202406-2173

PATIENT
  Sex: Female

DRUGS (12)
  1. OXERVATE [Suspect]
     Active Substance: CENEGERMIN-BKBJ
     Indication: Neurotrophic keratopathy
     Route: 047
     Dates: start: 20240528
  2. OXERVATE [Suspect]
     Active Substance: CENEGERMIN-BKBJ
  3. GLUCOSAMINE-CHONDROITIN-MSM [Concomitant]
  4. FLUTICASONE PROPIONATE [Concomitant]
     Active Substance: FLUTICASONE PROPIONATE
  5. ATORVASTATIN CALCIUM [Concomitant]
     Active Substance: ATORVASTATIN CALCIUM
  6. CHOLESTEROL RELIEF [Concomitant]
  7. SODIUM CHLORIDE [Concomitant]
  8. REFRESH TEARS [Concomitant]
     Active Substance: CARBOXYMETHYLCELLULOSE SODIUM
  9. IVIZIA [Concomitant]
     Active Substance: POVIDONE
  10. LUTEIN [Concomitant]
     Active Substance: LUTEIN
  11. MONTELUKAST SODIUM [Concomitant]
     Active Substance: MONTELUKAST\MONTELUKAST SODIUM
  12. IBUPROFEN [Concomitant]
     Active Substance: IBUPROFEN

REACTIONS (3)
  - Therapy non-responder [Unknown]
  - Product dose omission issue [Recovered/Resolved]
  - Influenza [Recovered/Resolved]
